FAERS Safety Report 14667135 (Version 1)
Quarter: 2018Q1

REPORT INFORMATION
  Report Type: Spontaneous
  Country: FR (occurrence: FR)
  Receive Date: 20180322
  Receipt Date: 20180322
  Transmission Date: 20180509
  Serious: Yes (Other)
  Sender: FDA-Public Use
  Company Number: FR-MERCK KGAA-2044276

PATIENT
  Age: 42 Year
  Sex: Female

DRUGS (1)
  1. NOVOTHYROX [Suspect]
     Active Substance: LEVOTHYROXINE SODIUM
     Indication: PRODUCT USED FOR UNKNOWN INDICATION
     Dates: start: 2017

REACTIONS (14)
  - Blood thyroid stimulating hormone increased [None]
  - Headache [None]
  - Impaired work ability [None]
  - Angina pectoris [None]
  - Listless [None]
  - Malaise [Not Recovered/Not Resolved]
  - Antisocial behaviour [None]
  - Migraine [Not Recovered/Not Resolved]
  - Loss of libido [Not Recovered/Not Resolved]
  - Disturbance in attention [None]
  - Decreased interest [None]
  - Irritability [None]
  - Apathy [None]
  - Psychomotor retardation [Not Recovered/Not Resolved]

NARRATIVE: CASE EVENT DATE: 2017
